FAERS Safety Report 8152823-3 (Version None)
Quarter: 2012Q1

REPORT INFORMATION
  Report Type: 
  Country: None (occurrence: None)
  Receive Date: 20120221
  Receipt Date: 20120214
  Transmission Date: 20120608
  Serious: Yes (Other)
  Sender: FDA-Public Use
  Company Number: CA-AMGEN-CANSP2012009751

PATIENT

DRUGS (1)
  1. ARANESP [Suspect]
     Indication: NEPHROPATHY
     Dosage: UNK

REACTIONS (1)
  - APLASIA PURE RED CELL [None]
